FAERS Safety Report 11623518 (Version 1)
Quarter: 2015Q4

REPORT INFORMATION
  Report Type: Spontaneous
  Country: US (occurrence: US)
  Receive Date: 20151013
  Receipt Date: 20151013
  Transmission Date: 20160304
  Serious: No
  Sender: FDA-Public Use
  Company Number: US-JNJFOC-20150316919

PATIENT
  Age: 93 Year
  Sex: Male

DRUGS (2)
  1. TYLENOL EXTRA STRENGTH [Suspect]
     Active Substance: ACETAMINOPHEN
     Route: 048
  2. TYLENOL EXTRA STRENGTH [Suspect]
     Active Substance: ACETAMINOPHEN
     Indication: SLEEP DISORDER THERAPY
     Dosage: ABOUT 20 YEARS AGO, HE BEGAIN TAKING 2, MAYBE 3 AT BEDTIME.
     Route: 048

REACTIONS (3)
  - Product use issue [Unknown]
  - Pruritus [Recovering/Resolving]
  - Incorrect dose administered [Unknown]
